FAERS Safety Report 4578867-6 (Version None)
Quarter: 2005Q1

REPORT INFORMATION
  Report Type: 
  Country: None (occurrence: None)
  Receive Date: 20050211
  Receipt Date: 20041202
  Transmission Date: 20050727
  Serious: Yes (Hospitalization, Other)
  Sender: FDA-Public Use
  Company Number: US-AMGEN-KDL101382

PATIENT
  Sex: Male

DRUGS (1)
  1. ENBREL [Suspect]
     Indication: PSORIATIC ARTHROPATHY
     Route: 058
     Dates: start: 20030101, end: 20040617

REACTIONS (3)
  - CHOLECYSTECTOMY [None]
  - HEADACHE [None]
  - HISTOPLASMOSIS DISSEMINATED [None]
